FAERS Safety Report 20832838 (Version 1)
Quarter: 2022Q2

REPORT INFORMATION
  Report Type: Spontaneous
  Country: DE (occurrence: DE)
  Receive Date: 20220516
  Receipt Date: 20220516
  Transmission Date: 20220721
  Serious: Yes (Death)
  Sender: FDA-Public Use
  Company Number: DE-PFIZER INC-202200636439

PATIENT
  Age: 67 Year
  Sex: Female

DRUGS (4)
  1. PEMBROLIZUMAB [Suspect]
     Active Substance: PEMBROLIZUMAB
     Indication: Sarcomatoid carcinoma
     Dosage: 200 MG, EVERY 3 WEEKS
  2. PEMBROLIZUMAB [Suspect]
     Active Substance: PEMBROLIZUMAB
     Dosage: EVERY 6 WEEKS
     Dates: start: 20201208
  3. INLYTA [Suspect]
     Active Substance: AXITINIB
     Indication: Sarcomatoid carcinoma
     Dosage: 5 MG, 2X/DAY
     Dates: start: 20201208
  4. INLYTA [Suspect]
     Active Substance: AXITINIB
     Dosage: 5 MG, 1X/DAY

REACTIONS (4)
  - Neoplasm progression [Unknown]
  - Hypertension [Unknown]
  - Off label use [Unknown]
  - Death [Fatal]
